FAERS Safety Report 4445146-7 (Version None)
Quarter: 2004Q3

REPORT INFORMATION
  Report Type: 
  Country: None (occurrence: None)
  Receive Date: 20040907
  Receipt Date: 20040824
  Transmission Date: 20050211
  Serious: Yes (Hospitalization)
  Sender: FDA-Public Use
  Company Number: 2004050568

PATIENT
  Age: 61 Year
  Sex: Male
  Weight: 94 kg

DRUGS (2)
  1. VIAGRA [Suspect]
     Indication: PULMONARY HYPERTENSION
     Dosage: 200 MG (50 MG, 4 IN 1 D), ORAL
     Route: 048
     Dates: start: 20040415
  2. DIURETICS (DIURETICS) [Concomitant]

REACTIONS (4)
  - DYSPNOEA EXACERBATED [None]
  - RIGHT VENTRICULAR FAILURE [None]
  - TREATMENT NONCOMPLIANCE [None]
  - WEIGHT INCREASED [None]
